FAERS Safety Report 7610587-3 (Version None)
Quarter: 2011Q3

REPORT INFORMATION
  Report Type: 
  Country: None (occurrence: None)
  Receive Date: 20110715
  Receipt Date: 20110706
  Transmission Date: 20111222
  Serious: Yes (Death, Other)
  Sender: FDA-Public Use
  Company Number: JP-GENZYME-THYM-1001981

PATIENT
  Age: 10 Year
  Sex: Female
  Weight: 40 kg

DRUGS (27)
  1. CYTARABINE [Concomitant]
     Indication: EPSTEIN-BARR VIRUS INFECTION
     Dosage: UNK
     Dates: start: 20100526, end: 20100608
  2. MEROPENEM [Concomitant]
     Indication: ANTIBIOTIC PROPHYLAXIS
     Dosage: UNK
     Dates: start: 20100614, end: 20100616
  3. MINOCYCLINE HCL [Concomitant]
     Indication: ANTIBIOTIC PROPHYLAXIS
     Dosage: UNK
     Dates: start: 20100614, end: 20100616
  4. CYCLOPHOSPHAMIDE [Concomitant]
     Indication: EPSTEIN-BARR VIRUS INFECTION
     Dosage: UNK
     Dates: start: 20100716, end: 20100716
  5. FAMOTIDINE [Concomitant]
     Indication: PROPHYLAXIS
     Dosage: UNK
     Dates: start: 20100604, end: 20100605
  6. CEFPIROME SULFATE [Concomitant]
     Indication: ANTIBIOTIC PROPHYLAXIS
     Dosage: UNK
     Dates: start: 20100607, end: 20100614
  7. VANCOMYCIN HYCHLORIDE [Concomitant]
     Indication: ANTIBIOTIC PROPHYLAXIS
     Dosage: UNK
     Dates: start: 20100616, end: 20100618
  8. CYCLOSPORINE [Concomitant]
     Indication: PROPHYLAXIS AGAINST GRAFT VERSUS HOST DISEASE
     Dosage: UNK
     Dates: start: 20100622, end: 20100708
  9. MEROPENEM [Concomitant]
     Dosage: UNK
     Dates: start: 20100713, end: 20100802
  10. MESNA [Concomitant]
     Indication: PROPHYLAXIS
     Dosage: UNK
     Dates: start: 20100716, end: 20100716
  11. FLUDARA [Suspect]
     Indication: EPSTEIN-BARR VIRUS INFECTION
     Dosage: UNK
     Dates: start: 20100604, end: 20100609
  12. TEICOPLANIN [Concomitant]
     Indication: ANTIBIOTIC PROPHYLAXIS
     Dosage: UNK
     Dates: start: 20100620, end: 20100715
  13. ETOPOSIDE [Concomitant]
     Indication: EPSTEIN-BARR VIRUS INFECTION
     Dosage: UNK
     Dates: start: 20100526, end: 20100608
  14. GANCICLOVIR [Concomitant]
     Indication: ANTIVIRAL PROPHYLAXIS
     Dosage: UNK
     Dates: start: 20100603, end: 20100610
  15. CYCLOSPORINE [Concomitant]
     Dosage: UNK
     Dates: start: 20100720, end: 20100920
  16. MICAFUNGIN SODIUM [Concomitant]
     Indication: ANTIFUNGAL PROPHYLAXIS
     Dosage: UNK
     Dates: start: 20100713, end: 20100801
  17. THYMOGLOBULIN [Suspect]
     Indication: BONE MARROW CONDITIONING REGIMEN
     Dosage: 50 MG, QD
     Route: 042
     Dates: start: 20100604, end: 20100605
  18. GRANISETRON HYDROCHLORIDE [Concomitant]
     Indication: ANTIEMETIC SUPPORTIVE CARE
     Dosage: UNK
     Dates: start: 20100526, end: 20100609
  19. TACROLIMUS [Concomitant]
     Indication: PROPHYLAXIS AGAINST GRAFT VERSUS HOST DISEASE
     Dosage: UNK
     Dates: start: 20100610, end: 20100617
  20. FLUDARA [Suspect]
     Dosage: UNK
     Dates: start: 20100716, end: 20100719
  21. ETOPOSIDE [Concomitant]
     Dosage: UNK
     Dates: start: 20100718, end: 20100719
  22. MELPHALAN HYDROCHLORIDE [Concomitant]
     Indication: EPSTEIN-BARR VIRUS INFECTION
     Dosage: UNK
     Dates: start: 20100607, end: 20100608
  23. METHYLPREDNISOLONE SODIUM SUCCINATE [Concomitant]
     Indication: PREMEDICATION
     Dosage: UNK
     Dates: start: 20100604, end: 20100605
  24. METHOTREXATE [Concomitant]
     Indication: PROPHYLAXIS AGAINST GRAFT VERSUS HOST DISEASE
     Dosage: UNK
     Dates: start: 20100612, end: 20100617
  25. ACYCLOVIR [Concomitant]
     Indication: ANTIVIRAL PROPHYLAXIS
     Dosage: UNK
     Dates: start: 20100612, end: 20100920
  26. GRANISETRON HYDROCHLORIDE [Concomitant]
     Dosage: UNK
     Dates: start: 20100716, end: 20100721
  27. FOSFLUCONAZOLE [Concomitant]
     Indication: ANTIFUNGAL PROPHYLAXIS
     Dosage: UNK
     Dates: start: 20100607, end: 20100713

REACTIONS (3)
  - PNEUMONIA CYTOMEGALOVIRAL [None]
  - NEUTROPENIA [None]
  - ENGRAFT FAILURE [None]
